FAERS Safety Report 8502568-2 (Version None)
Quarter: 2012Q3

REPORT INFORMATION
  Report Type: 
  Country: None (occurrence: None)
  Receive Date: 20120711
  Receipt Date: 20120703
  Transmission Date: 20120928
  Serious: Yes (Other)
  Sender: FDA-Public Use
  Company Number: US-US-EMD SERONO, INC.-7035260

PATIENT
  Sex: Female
  Weight: 51 kg

DRUGS (1)
  1. REBIF [Suspect]
     Indication: MULTIPLE SCLEROSIS
     Route: 058
     Dates: start: 20070430

REACTIONS (4)
  - JOINT DISLOCATION [None]
  - FALL [None]
  - CYSTITIS [None]
  - INJECTION SITE PAIN [None]
